FAERS Safety Report 14843399 (Version 2)
Quarter: 2018Q2

REPORT INFORMATION
  Report Type: Report from Study
  Country: IT (occurrence: IT)
  Receive Date: 20180503
  Receipt Date: 20180627
  Transmission Date: 20180711
  Serious: Yes (Other)
  Sender: FDA-Public Use
  Company Number: IT-PFIZER INC-2018175716

PATIENT
  Age: 76 Year
  Sex: Female

DRUGS (10)
  1. TRIATEC [Concomitant]
     Dosage: 5 MG, UNK (1 DF)
     Route: 048
  2. LAMICTAL [Concomitant]
     Active Substance: LAMOTRIGINE
     Dosage: 75 MG, UNK (3 DF)
     Route: 048
  3. PANTOPRAZOLE [Concomitant]
     Active Substance: PANTOPRAZOLE
     Dosage: 20 MG, UNK
     Route: 048
  4. CARDIOASPIRIN [Concomitant]
     Active Substance: ASPIRIN
     Dosage: 100 MG, UNK (1 DF)
     Route: 048
  5. TORVAST [Concomitant]
     Active Substance: ATORVASTATIN
     Dosage: 20 MG, UNK (1 DF)
     Route: 048
  6. INDERAL [Concomitant]
     Active Substance: PROPRANOLOL HYDROCHLORIDE
     Dosage: 1 DF, UNK
     Route: 048
  7. LAROXYL [Suspect]
     Active Substance: AMITRIPTYLINE HYDROCHLORIDE
     Indication: NEURALGIA
     Dosage: 5 GTT, 1X/DAY
     Route: 048
     Dates: start: 20180314, end: 20180320
  8. LYRICA [Suspect]
     Active Substance: PREGABALIN
     Indication: NEURALGIA
     Dosage: 1 DF, 1X/DAY
     Route: 048
     Dates: start: 20180314, end: 20180320
  9. DINTOINA [Concomitant]
     Active Substance: PHENYTOIN SODIUM
     Dosage: 300 MG, UNK (3 DF)
     Route: 048
  10. CYMBALTA [Concomitant]
     Active Substance: DULOXETINE HYDROCHLORIDE
     Dosage: 60 MG, UNK (1 DF)
     Route: 048

REACTIONS (3)
  - Paralysis [Recovering/Resolving]
  - Diplopia [Recovering/Resolving]
  - Balance disorder [Recovering/Resolving]

NARRATIVE: CASE EVENT DATE: 20180317
